FAERS Safety Report 18502696 (Version 1)
Quarter: 2020Q4

REPORT INFORMATION
  Report Type: Spontaneous
  Country: RS (occurrence: RS)
  Receive Date: 20201113
  Receipt Date: 20201113
  Transmission Date: 20210114
  Serious: Yes (Other)
  Sender: FDA-Public Use
  Company Number: RS-JNJFOC-20201048179

PATIENT
  Age: 60 Year
  Sex: Female
  Weight: 68 kg

DRUGS (7)
  1. PRONISON [Concomitant]
     Active Substance: PREDNISONE
     Indication: SPONDYLITIS
  2. SIMPONI [Suspect]
     Active Substance: GOLIMUMAB
     Indication: ANKYLOSING SPONDYLITIS
     Route: 058
     Dates: start: 201501
  3. SULFASALAZINE DELAYED-RELEASE [Concomitant]
     Active Substance: SULFASALAZINE
     Indication: ANKYLOSING SPONDYLITIS
  4. CHOLECALCIFEROL [Concomitant]
     Active Substance: CHOLECALCIFEROL
     Indication: ANKYLOSING SPONDYLITIS
  5. SULFASALAZINE DELAYED-RELEASE [Concomitant]
     Active Substance: SULFASALAZINE
     Indication: SPONDYLITIS
  6. ALVODRONIC [Concomitant]
     Indication: ANKYLOSING SPONDYLITIS
  7. SIMPONI [Suspect]
     Active Substance: GOLIMUMAB

REACTIONS (3)
  - Diverticulitis [Unknown]
  - Colonic abscess [Unknown]
  - Spondylitis [Unknown]

NARRATIVE: CASE EVENT DATE: 201704
